FAERS Safety Report 22045156 (Version 1)
Quarter: 2023Q1

REPORT INFORMATION
  Report Type: Spontaneous
  Country: US (occurrence: US)
  Receive Date: 20230228
  Receipt Date: 20230228
  Transmission Date: 20230417
  Serious: Yes (Death, Life-Threatening, Other)
  Sender: FDA-Public Use
  Company Number: US-AMGEN-USASP2023032299

PATIENT

DRUGS (5)
  1. PEGFILGRASTIM [Suspect]
     Active Substance: PEGFILGRASTIM
     Indication: Prophylaxis
     Dosage: UNK
     Route: 065
  2. DOCETAXEL [Concomitant]
     Active Substance: DOCETAXEL
     Indication: Nasopharyngeal cancer
  3. PLATINUM [Concomitant]
     Active Substance: PLATINUM
     Indication: Nasopharyngeal cancer
  4. FLUOROURACIL [Concomitant]
     Active Substance: FLUOROURACIL
     Indication: Nasopharyngeal cancer
  5. CIPROFLOXACIN [Concomitant]
     Active Substance: CIPROFLOXACIN
     Indication: Nasopharyngeal cancer

REACTIONS (51)
  - Death [Fatal]
  - Nasopharyngeal cancer metastatic [Fatal]
  - Lymphocyte count decreased [Unknown]
  - Neutropenia [Unknown]
  - Hypokalaemia [Unknown]
  - Hypocalcaemia [Unknown]
  - Hyponatraemia [Unknown]
  - Dermatitis [Unknown]
  - Coronavirus infection [Unknown]
  - Febrile neutropenia [Unknown]
  - Diarrhoea [Unknown]
  - Anaemia [Unknown]
  - Dysphagia [Unknown]
  - Nausea [Unknown]
  - Neuropathy peripheral [Unknown]
  - White blood cell count decreased [Unknown]
  - Vomiting [Unknown]
  - Hypertension [Unknown]
  - Colitis [Unknown]
  - Skin disorder [Unknown]
  - Pulmonary embolism [Unknown]
  - Palmar-plantar erythrodysaesthesia syndrome [Unknown]
  - Thrombocytopenia [Unknown]
  - Abdominal distension [Unknown]
  - Abdominal pain [Unknown]
  - Gastrooesophageal reflux disease [Unknown]
  - Alanine aminotransferase increased [Unknown]
  - Alopecia [Unknown]
  - Decreased appetite [Unknown]
  - Constipation [Unknown]
  - Dehydration [Unknown]
  - Dermatitis [Unknown]
  - Fatigue [Unknown]
  - Hyperglycaemia [Unknown]
  - Muscular weakness [Unknown]
  - Stomatitis [Unknown]
  - Oral pain [Unknown]
  - Paraesthesia [Unknown]
  - Salivary duct inflammation [Unknown]
  - Skin infection [Unknown]
  - Somnolence [Unknown]
  - Candida infection [Unknown]
  - Weight decreased [Unknown]
  - Dry mouth [Unknown]
  - Blood creatinine increased [Unknown]
  - Colitis [Unknown]
  - Laryngeal inflammation [Unknown]
  - Otitis media [Unknown]
  - Urinary tract infection [Unknown]
  - Hypoalbuminaemia [Unknown]
  - Pain in extremity [Unknown]
